FAERS Safety Report 21133891 (Version 1)
Quarter: 2022Q3

REPORT INFORMATION
  Report Type: Spontaneous
  Country: US (occurrence: US)
  Receive Date: 20220726
  Receipt Date: 20220726
  Transmission Date: 20221027
  Serious: No
  Sender: FDA-Public Use
  Company Number: US-OYSTER POINT PHARMA, INC.-2022OYS00485

PATIENT
  Sex: Female

DRUGS (2)
  1. TYRVAYA [Suspect]
     Active Substance: VARENICLINE TARTRATE
     Dosage: UNK
     Route: 045
     Dates: start: 20220507
  2. XIIDRA [Concomitant]
     Active Substance: LIFITEGRAST

REACTIONS (7)
  - Rhinalgia [Unknown]
  - Eye irritation [Unknown]
  - Product after taste [Unknown]
  - Eye paraesthesia [Unknown]
  - Lacrimation increased [Unknown]
  - Nasal discomfort [Unknown]
  - Wrong technique in product usage process [Unknown]

NARRATIVE: CASE EVENT DATE: 20220501
